FAERS Safety Report 10037626 (Version 2)
Quarter: 2014Q2

REPORT INFORMATION
  Report Type: Spontaneous
  Country: US (occurrence: None)
  Receive Date: 20140324
  Receipt Date: 20140509
  Transmission Date: 20141212
  Serious: Yes (Death, Hospitalization)
  Sender: FDA-Public Use
  Company Number: UTC-045962

PATIENT
  Age: 68 Year
  Sex: Male
  Weight: 82 kg

DRUGS (2)
  1. REMODULIN [Suspect]
     Indication: PULMONARY ARTERIAL HYPERTENSION
     Dosage: 0.018 UG/KG, 1 IN 1 MIN
     Route: 058
     Dates: start: 20131121
  2. COUMADIN (WARFARIN SODIUM) [Concomitant]

REACTIONS (4)
  - Pleural effusion [None]
  - Respiratory failure [None]
  - Sepsis [None]
  - Pulmonary oedema [None]
